FAERS Safety Report 14868083 (Version 2)
Quarter: 2018Q2

REPORT INFORMATION
  Report Type: Report from Study
  Country: TR (occurrence: TR)
  Receive Date: 20180509
  Receipt Date: 20180510
  Transmission Date: 20180711
  Serious: Yes (Death)
  Sender: FDA-Public Use
  Company Number: TR-INGENUS PHARMACEUTICALS NJ, LLC-ING201804-000394

PATIENT
  Age: 3 Year
  Sex: Female

DRUGS (1)
  1. PROBENECID AND COLCHICINE [Suspect]
     Active Substance: COLCHICINE\PROBENECID
     Dosage: }0.8 MG/KG

REACTIONS (3)
  - Multiple organ dysfunction syndrome [Fatal]
  - Circulatory collapse [Fatal]
  - Accidental overdose [Fatal]
